FAERS Safety Report 9888036 (Version 1)
Quarter: 2014Q1

REPORT INFORMATION
  Report Type: Spontaneous
  Country: ES (occurrence: ES)
  Receive Date: 20140211
  Receipt Date: 20140211
  Transmission Date: 20141002
  Serious: Yes (Hospitalization)
  Sender: FDA-Public Use
  Company Number: ES-PFIZER INC-2014036162

PATIENT
  Age: 68 Year
  Sex: Female

DRUGS (4)
  1. DEXAMETHASONE SODIUM PHOSPHATE [Suspect]
     Indication: PLASMA CELL MYELOMA
     Dosage: UNK
  2. LENALIDOMIDE [Suspect]
     Indication: PLASMA CELL MYELOMA
     Dosage: 25 MG, DAILY
  3. LENALIDOMIDE [Suspect]
     Dosage: 15 MG, DAILY
  4. LENALIDOMIDE [Suspect]
     Dosage: 10 MG, DAILY

REACTIONS (1)
  - Febrile neutropenia [Unknown]
